FAERS Safety Report 5023549-X (Version None)
Quarter: 2006Q2

REPORT INFORMATION
  Report Type: 
  Country: None (occurrence: None)
  Receive Date: 20060606
  Receipt Date: 20060524
  Transmission Date: 20061013
  Serious: Yes (Hospitalization)
  Sender: FDA-Public Use
  Company Number: 253620

PATIENT
  Age: 63 Year
  Sex: Female
  Weight: 107 kg

DRUGS (8)
  1. INSULATARD FLEXPEN HM(GE)(INSULATARD FLEXPEN HM(GE))(INSULIN HUMAN) SU [Suspect]
     Indication: INSULIN-REQUIRING TYPE II DIABETES MELLITUS
     Dosage: 40 IU, QD, INTRAVENOUS
     Route: 042
     Dates: start: 20030313
  2. COVERSYL (PERINDOPRIL) [Concomitant]
  3. PAMOL (PARACETAMOL) [Concomitant]
  4. FUROSEMIDE [Concomitant]
  5. ARTHROTEC (DICLOFENAC SODIUM) [Concomitant]
  6. ATORVASTATIN CALCIUM [Concomitant]
  7. SPIRIX (SPIRONOLACTONE) [Concomitant]
  8. GABAPENTIN [Concomitant]

REACTIONS (4)
  - CUSHING'S SYNDROME [None]
  - GLYCOSYLATED HAEMOGLOBIN INCREASED [None]
  - MEDICAL OBSERVATION [None]
  - NEPHROPATHY [None]
